FAERS Safety Report 18796721 (Version 5)
Quarter: 2022Q2

REPORT INFORMATION
  Report Type: Report from Study
  Country: ES (occurrence: ES)
  Receive Date: 20210127
  Receipt Date: 20220513
  Transmission Date: 20220721
  Serious: Yes (Hospitalization, Other)
  Sender: FDA-Public Use
  Company Number: ES-BRISTOL-MYERS SQUIBB COMPANY-BMS-2021-006304

PATIENT
  Age: 41 Year
  Sex: Male
  Weight: 64 kg

DRUGS (5)
  1. IPILIMUMAB [Suspect]
     Active Substance: IPILIMUMAB
     Indication: Colorectal cancer
     Dosage: MOST RECENT DOSE RECEIVED 30-DEC-2020
     Route: 042
     Dates: start: 20201209
  2. ACETAMINOPHEN [Concomitant]
     Active Substance: ACETAMINOPHEN
     Indication: Product used for unknown indication
     Dosage: 1 GRAM-ONGOING
     Route: 048
     Dates: start: 202010
  3. FERRO [IRON] [Concomitant]
     Indication: Product used for unknown indication
     Dosage: 100 MILLIGRAM-ONGOING
     Route: 048
     Dates: start: 202010
  4. OMEPRAZOLE [Concomitant]
     Active Substance: OMEPRAZOLE
     Indication: Product used for unknown indication
     Dosage: 20 MILLIGRAM-ONGOING
     Route: 048
     Dates: start: 202010
  5. METAMIZOLE MAGNESIUM [Concomitant]
     Active Substance: METAMIZOLE MAGNESIUM
     Indication: Product used for unknown indication
     Dosage: 575 MILLIGRAM-ONGOING
     Route: 048
     Dates: start: 202010

REACTIONS (1)
  - Intestinal obstruction [Not Recovered/Not Resolved]

NARRATIVE: CASE EVENT DATE: 20210119
